FAERS Safety Report 18607967 (Version 1)
Quarter: 2020Q4

REPORT INFORMATION
  Report Type: Spontaneous
  Country: GR (occurrence: GR)
  Receive Date: 20201212
  Receipt Date: 20201212
  Transmission Date: 20210114
  Serious: Yes (Other)
  Sender: FDA-Public Use
  Company Number: GR-LEADINGPHARMA-GR-2020LEALIT00177

PATIENT
  Age: 52 Year
  Sex: Male

DRUGS (6)
  1. CLOMIPRAMINE HCL CAPSULES USP [Suspect]
     Active Substance: CLOMIPRAMINE HYDROCHLORIDE
     Indication: SUPRAVENTRICULAR TACHYARRHYTHMIA
     Route: 042
  2. ATROPINE. [Interacting]
     Active Substance: ATROPINE
     Indication: SEIZURE
  3. NITROGLYCERINE [Interacting]
     Active Substance: NITROGLYCERIN
     Route: 065
  4. ATROPINE. [Interacting]
     Active Substance: ATROPINE
     Indication: SYNCOPE
     Route: 042
  5. AMIODARONE [Interacting]
     Active Substance: AMIODARONE
     Route: 042
  6. ISOPROTERENOL [ISOPRENALINE] [Interacting]
     Active Substance: ISOPROTERENOL
     Route: 065

REACTIONS (1)
  - Atrial fibrillation [Recovered/Resolved]
